FAERS Safety Report 22382462 (Version 1)
Quarter: 2023Q2

REPORT INFORMATION
  Report Type: Spontaneous
  Country: GB (occurrence: GB)
  Receive Date: 20230530
  Receipt Date: 20230530
  Transmission Date: 20230721
  Serious: Yes (Other)
  Sender: FDA-Public Use
  Company Number: GB-ViiV Healthcare Limited-GB2023EME074805

PATIENT

DRUGS (3)
  1. EPIVIR [Suspect]
     Active Substance: LAMIVUDINE
     Indication: HIV infection
     Dosage: UNK 10MG/ML OSOL 240 MI 1
  2. EPIVIR [Suspect]
     Active Substance: LAMIVUDINE
     Dosage: 25 MG 10MG/ML OSOL 240 MI 1
  3. TIVICAY [Suspect]
     Active Substance: DOLUTEGRAVIR SODIUM
     Indication: HIV infection
     Dosage: UNK 50MG TABLETS 30

REACTIONS (1)
  - Renal failure [Unknown]
